FAERS Safety Report 13042016 (Version 1)
Quarter: 2016Q4

REPORT INFORMATION
  Report Type: Spontaneous
  Country: SE (occurrence: SE)
  Receive Date: 20161219
  Receipt Date: 20161219
  Transmission Date: 20170207
  Serious: Yes (Disabling)
  Sender: FDA-Public Use
  Company Number: SE-TAKEDA-2016TUS022657

PATIENT
  Age: 41 Year
  Sex: Female

DRUGS (1)
  1. BRINTELLIX [Suspect]
     Active Substance: VORTIOXETINE HYDROBROMIDE
     Indication: DEPRESSION
     Dosage: 10 MG, QD
     Route: 065
     Dates: end: 20160926

REACTIONS (12)
  - Immunodeficiency [Unknown]
  - Asthenia [Unknown]
  - Fatigue [Unknown]
  - Libido decreased [Unknown]
  - Memory impairment [Unknown]
  - Feeling hot [Unknown]
  - Motor dysfunction [Unknown]
  - Pyrexia [Unknown]
  - Tension headache [Unknown]
  - Pain [Unknown]
  - Hypersomnia [Unknown]
  - Balance disorder [Unknown]

NARRATIVE: CASE EVENT DATE: 2015
